FAERS Safety Report 9928590 (Version 1)
Quarter: 2014Q1

REPORT INFORMATION
  Report Type: Spontaneous
  Country: DE (occurrence: DE)
  Receive Date: 20140227
  Receipt Date: 20140227
  Transmission Date: 20141002
  Serious: Yes (Hospitalization, Congenital Anomaly, Other)
  Sender: FDA-Public Use
  Company Number: DE-ELI_LILLY_AND_COMPANY-DE201402005493

PATIENT
  Age: 0 Day
  Sex: Female

DRUGS (4)
  1. CYMBALTA [Suspect]
     Indication: DEPRESSION
     Dosage: 120 MG, QD
     Route: 064
  2. CYMBALTA [Suspect]
     Indication: DEPRESSION
     Dosage: 120 MG, QD
     Route: 064
  3. VALDOXAN [Suspect]
     Indication: DEPRESSION
     Dosage: 25 MG, QD
     Route: 064
  4. VALDOXAN [Suspect]
     Indication: DEPRESSION
     Dosage: 25 MG, QD
     Route: 064

REACTIONS (5)
  - Polydactyly [Not Recovered/Not Resolved]
  - Foetal heart rate deceleration abnormality [Unknown]
  - Breech presentation [Recovered/Resolved]
  - Small for dates baby [Unknown]
  - Exposure during pregnancy [Unknown]
